FAERS Safety Report 6730435-3 (Version None)
Quarter: 2010Q2

REPORT INFORMATION
  Report Type: 
  Country: None (occurrence: None)
  Receive Date: 20100518
  Receipt Date: 20100510
  Transmission Date: 20101027
  Serious: Yes (Other)
  Sender: FDA-Public Use
  Company Number: B0652273A

PATIENT
  Sex: Female

DRUGS (4)
  1. VENTOLIN [Suspect]
     Indication: ASTHMA
     Dosage: 2PUFF AS REQUIRED
     Route: 055
  2. CITALOPRAM [Concomitant]
     Route: 065
  3. BECLOMETHASONE INHALER [Concomitant]
     Route: 055
  4. PEPPERMINT OIL [Concomitant]
     Route: 065

REACTIONS (3)
  - ASTHMA [None]
  - PANIC ATTACK [None]
  - PRODUCT QUALITY ISSUE [None]
